FAERS Safety Report 11220739 (Version 1)
Quarter: 2015Q2

REPORT INFORMATION
  Report Type: Spontaneous
  Country: US (occurrence: None)
  Receive Date: 20150625
  Receipt Date: 20150625
  Transmission Date: 20150821
  Serious: Yes (Hospitalization)
  Sender: FDA-Public Use
  Company Number: None

PATIENT
  Age: 66 Year
  Sex: Male
  Weight: 114.5 kg

DRUGS (2)
  1. SULFAMETHOXAZOLE/TRIMETHOPRIM [Suspect]
     Active Substance: SULFAMETHOXAZOLE\TRIMETHOPRIM
     Indication: CELLULITIS
     Dosage: 800/160 MG
     Route: 048
     Dates: start: 20150225, end: 20150304
  2. BACITRACIN/NEOMYCIN/POLYMIXIN [Suspect]
     Active Substance: BACITRACIN\NEOMYCIN\POLYMYXIN
     Indication: CELLULITIS
     Route: 061
     Dates: start: 20150218, end: 20150304

REACTIONS (8)
  - Dermatitis contact [None]
  - Swelling [None]
  - Pruritus [None]
  - Xerosis [None]
  - Urticaria [None]
  - Rash [None]
  - Eczema [None]
  - Dermatitis [None]

NARRATIVE: CASE EVENT DATE: 20150218
